FAERS Safety Report 7407633-9 (Version None)
Quarter: 2011Q2

REPORT INFORMATION
  Report Type: 
  Country: None (occurrence: None)
  Receive Date: 20110401
  Receipt Date: 20110318
  Transmission Date: 20111010
  Serious: Yes (Hospitalization, Disabling)
  Sender: FDA-Public Use
  Company Number: OSCN-NO-0903S-0139

PATIENT
  Age: 37 Year
  Sex: Male
  Weight: 58 kg

DRUGS (13)
  1. CALCIUM ACETATE (CALCIUM ACETATE) [Concomitant]
  2. INSULIN (INSULIN) [Concomitant]
  3. LEVOTHYROXINE SODIUM [Concomitant]
  4. DIALYSIS VITAMINS (VITAMINS /90003601/) [Concomitant]
  5. OMNISCAN [Suspect]
     Indication: RENAL TRANSPLANT
     Dosage: 30 ML, SINGLE DOSE, INTRAVENOUS
     Route: 042
     Dates: start: 20020429, end: 20020429
  6. GADOLINIUM (UNSPECIFIED) (GADOLINUM) [Suspect]
     Indication: RENAL TRANSPLANT
     Dates: start: 20041014, end: 20041014
  7. GADOLINIUM (UNSPECIFIED) (GADOLINUM) [Suspect]
     Indication: RENAL TRANSPLANT
     Dates: start: 20010601, end: 20010601
  8. ACETYLSALICYLIC ACID (ACETYLSALICYLIC ACID) [Concomitant]
  9. DILTIAZEM [Concomitant]
  10. SACCHARATED IRON OXIDE (VENOFER) (SACCHARATED IRON OXIDE) [Concomitant]
  11. MEGLUMINE GADOTERATE (DOTAREM) (MEGLUMINE GADOTERATE) [Concomitant]
  12. OMEPRAZOLE [Concomitant]
  13. METOPROLOL (METOPROLOL) [Concomitant]

REACTIONS (3)
  - NEPHROGENIC SYSTEMIC FIBROSIS [None]
  - GAIT DISTURBANCE [None]
  - JOINT SWELLING [None]
